FAERS Safety Report 10102311 (Version 1)
Quarter: 2014Q2

REPORT INFORMATION
  Report Type: Spontaneous
  Country: US (occurrence: US)
  Receive Date: 20140424
  Receipt Date: 20140424
  Transmission Date: 20141212
  Serious: Yes (Death)
  Sender: FDA-Public Use
  Company Number: US-ACTELION-A-US2014-97971

PATIENT
  Age: 27 Year
  Sex: Male

DRUGS (3)
  1. VENTAVIS [Suspect]
     Indication: HEART DISEASE CONGENITAL
     Dosage: 2.5 MCG, 4-6 X DAILY
     Route: 055
     Dates: start: 20140220
  2. ADCIRCA [Concomitant]
  3. COUMADIN [Concomitant]

REACTIONS (1)
  - Cardiac failure [Fatal]
